FAERS Safety Report 26079637 (Version 1)
Quarter: 2025Q4

REPORT INFORMATION
  Report Type: Spontaneous
  Country: US (occurrence: US)
  Receive Date: 20251123
  Receipt Date: 20251123
  Transmission Date: 20260117
  Serious: No
  Sender: AMGEN
  Company Number: US-AMGEN-USASP2025227256

PATIENT
  Age: 35 Year
  Sex: Female

DRUGS (1)
  1. UPLIZNA [Suspect]
     Active Substance: INEBILIZUMAB-CDON
     Indication: Neuromyelitis optica spectrum disorder
     Dosage: 300 MILLIGRAM (DOSE #1 AND #2 2 WKS APART. SUBSEQUENT DOSES Q6MO FROM 1ST INFUSION)
     Route: 040
     Dates: start: 20251106

REACTIONS (3)
  - Diarrhoea [Recovering/Resolving]
  - Miliaria [Recovering/Resolving]
  - Blood pressure increased [Recovering/Resolving]

NARRATIVE: CASE EVENT DATE: 20251106
